FAERS Safety Report 7222211-2 (Version None)
Quarter: 2011Q1

REPORT INFORMATION
  Report Type: 
  Country: None (occurrence: None)
  Receive Date: 20110103
  Receipt Date: 20101228
  Transmission Date: 20110831
  Serious: Yes (Other)
  Sender: FDA-Public Use
  Company Number: 2010SP042548

PATIENT
  Age: 17 Year
  Sex: Male

DRUGS (2)
  1. REMERON [Suspect]
     Indication: PRODUCT USED FOR UNKNOWN INDICATION
     Dosage: 150 MG;ONCE;PO
     Route: 048
     Dates: start: 20100803, end: 20100803
  2. SEDIEL (TANDOSPIRONE CITRATE) [Suspect]
     Indication: PRODUCT USED FOR UNKNOWN INDICATION
     Dosage: 20 DF;ONCE;PO
     Route: 048
     Dates: start: 20100803, end: 20100803

REACTIONS (3)
  - IRRITABILITY [None]
  - OVERDOSE [None]
  - INTENTIONAL SELF-INJURY [None]
